FAERS Safety Report 15077231 (Version 1)
Quarter: 2018Q2

REPORT INFORMATION
  Report Type: Spontaneous
  Country: US (occurrence: US)
  Receive Date: 20180607
  Receipt Date: 20180607
  Transmission Date: 20180711
  Serious: Yes (Hospitalization)
  Sender: FDA-Public Use
  Company Number: None

PATIENT
  Age: 47 Year
  Sex: Male

DRUGS (2)
  1. CEFAZOLIN [Suspect]
     Active Substance: CEFAZOLIN
     Indication: ENDOCARDITIS
     Dosage: ?          OTHER FREQUENCY:Q 8 H;?
     Route: 041
     Dates: start: 20180601, end: 20180602
  2. CEFAZOLIN [Suspect]
     Active Substance: CEFAZOLIN
     Indication: SPINAL CORD ABSCESS
     Dosage: ?          OTHER FREQUENCY:Q 8 H;?
     Route: 041
     Dates: start: 20180601, end: 20180602

REACTIONS (2)
  - Condition aggravated [None]
  - Rash [None]

NARRATIVE: CASE EVENT DATE: 20180602
